FAERS Safety Report 5401515-X (Version None)
Quarter: 2007Q3

REPORT INFORMATION
  Report Type: 
  Country: None (occurrence: None)
  Receive Date: 20070731
  Receipt Date: 20070719
  Transmission Date: 20080115
  Serious: Yes (Hospitalization)
  Sender: FDA-Public Use
  Company Number: GB-ROCHE-503990

PATIENT
  Age: 70 Year
  Sex: Female
  Weight: 87 kg

DRUGS (9)
  1. XENICAL [Suspect]
     Indication: OBESITY
     Route: 048
     Dates: start: 20070101
  2. XENICAL [Suspect]
     Route: 048
     Dates: start: 20060801, end: 20061101
  3. CANDESARTAN CILEXETIL [Suspect]
     Indication: DRUG USE FOR UNKNOWN INDICATION
     Route: 065
     Dates: start: 20070101
  4. AZITHROMYCIN [Concomitant]
  5. DOXAZOSIN MESYLATE [Concomitant]
  6. PRAVASTATIN [Concomitant]
  7. BUDESONIDE/FORMOTEROL [Concomitant]
     Route: 055
  8. SALBUTAMOL [Concomitant]
  9. AMLODIPINE [Concomitant]

REACTIONS (1)
  - ATRIAL FIBRILLATION [None]
